FAERS Safety Report 17291498 (Version 1)
Quarter: 2020Q1

REPORT INFORMATION
  Report Type: Report from Study
  Country: US (occurrence: US)
  Receive Date: 20200121
  Receipt Date: 20200121
  Transmission Date: 20200409
  Serious: Yes (Death, Hospitalization, Other)
  Sender: FDA-Public Use
  Company Number: US-BAYER-2019-194985

PATIENT
  Age: 74 Year
  Sex: Female

DRUGS (6)
  1. NEXAVAR [Suspect]
     Active Substance: SORAFENIB
     Indication: HEPATOCELLULAR CARCINOMA
     Dosage: 200 MG, UNK
     Dates: start: 201509, end: 201509
  2. NEXAVAR [Suspect]
     Active Substance: SORAFENIB
     Indication: HEPATOCELLULAR CARCINOMA
     Dosage: 400 MG, BID
     Dates: start: 20150829, end: 2015
  3. NEXAVAR [Suspect]
     Active Substance: SORAFENIB
     Indication: HEPATOCELLULAR CARCINOMA
     Dosage: 200 MG
  4. NEXAVAR [Suspect]
     Active Substance: SORAFENIB
     Indication: HEPATOCELLULAR CARCINOMA
     Dosage: 600 MG (400 IN AM AND 200 MG IN PM).
     Dates: start: 201601, end: 201603
  5. NEXAVAR [Suspect]
     Active Substance: SORAFENIB
     Indication: HEPATOCELLULAR CARCINOMA
     Dosage: UNK
     Dates: start: 201512
  6. NEXAVAR [Suspect]
     Active Substance: SORAFENIB
     Indication: HEPATOCELLULAR CARCINOMA
     Dosage: 200 MG, BID
     Dates: start: 201606

REACTIONS (15)
  - Upper gastrointestinal haemorrhage [None]
  - Vomiting [None]
  - Abdominal pain upper [Not Recovered/Not Resolved]
  - Metastases to skin [None]
  - Abdominal discomfort [None]
  - Hepatocellular carcinoma [None]
  - Diarrhoea [None]
  - Diverticulitis [None]
  - Vaginal discharge [None]
  - Depression [None]
  - Vaginal discharge [Not Recovered/Not Resolved]
  - Tumour fistulisation [Not Recovered/Not Resolved]
  - Drug intolerance [None]
  - Nausea [None]
  - Hepatic cancer metastatic [Fatal]

NARRATIVE: CASE EVENT DATE: 201512
